FAERS Safety Report 8471637-8 (Version None)
Quarter: 2012Q2

REPORT INFORMATION
  Report Type: 
  Country: None (occurrence: None)
  Receive Date: 20120627
  Receipt Date: 20120618
  Transmission Date: 20120825
  Serious: Yes (Other)
  Sender: FDA-Public Use
  Company Number: ES-ASTRAZENECA-2012SE15934

PATIENT
  Age: 57 Year
  Sex: Female
  Weight: 56 kg

DRUGS (3)
  1. PROTELOS [Concomitant]
     Route: 048
  2. CRESTOR [Suspect]
     Route: 048
     Dates: start: 20120201, end: 20120201
  3. SINGULAIR [Concomitant]
     Route: 048

REACTIONS (1)
  - PARAESTHESIA [None]
